FAERS Safety Report 5374362-5 (Version None)
Quarter: 2007Q2

REPORT INFORMATION
  Report Type: 
  Country: None (occurrence: None)
  Receive Date: 20070629
  Receipt Date: 20070626
  Transmission Date: 20071010
  Serious: Yes (Other)
  Sender: FDA-Public Use
  Company Number: PHEH2007US09281

PATIENT
  Sex: Female

DRUGS (8)
  1. ZOMETA [Suspect]
     Dosage: 4 MG, UNK
     Dates: end: 20060501
  2. ABRAXANE [Concomitant]
  3. AVASTIN [Concomitant]
  4. NAVELBINE [Concomitant]
  5. TAXOTERE [Concomitant]
  6. CARBOPLATIN [Concomitant]
  7. TAXOL [Concomitant]
  8. XELODA [Concomitant]

REACTIONS (1)
  - OSTEONECROSIS [None]
